FAERS Safety Report 11767448 (Version 2)
Quarter: 2015Q4

REPORT INFORMATION
  Report Type: Spontaneous
  Country: CL (occurrence: CL)
  Receive Date: 20151123
  Receipt Date: 20151209
  Transmission Date: 20160304
  Serious: Yes (Death, Other)
  Sender: FDA-Public Use
  Company Number: CL-JNJFOC-20151119144

PATIENT
  Age: 61 Year
  Sex: Female

DRUGS (4)
  1. SURGICEL [Suspect]
     Active Substance: CELLULOSE, OXIDIZED
     Indication: HAEMOSTASIS
     Route: 061
     Dates: start: 20151110, end: 20151110
  2. EVICEL [Suspect]
     Active Substance: FIBRINOGEN HUMAN\THROMBIN HUMAN
     Indication: HAEMOSTASIS
     Route: 061
     Dates: start: 20151110, end: 20151110
  3. LOCAL HEMOSTATICS [Concomitant]
     Indication: HAEMOSTASIS
     Route: 061
  4. SURGICEL [Suspect]
     Active Substance: CELLULOSE, OXIDIZED
     Indication: HAEMOSTASIS
     Route: 061
     Dates: start: 20151110, end: 20151110

REACTIONS (3)
  - Intracranial pressure increased [Unknown]
  - Off label use [Not Recovered/Not Resolved]
  - Respiratory failure [Fatal]

NARRATIVE: CASE EVENT DATE: 20151110
